FAERS Safety Report 15959074 (Version 2)
Quarter: 2019Q1

REPORT INFORMATION
  Report Type: Spontaneous
  Country: DE (occurrence: DE)
  Receive Date: 20190214
  Receipt Date: 20190220
  Transmission Date: 20190417
  Serious: Yes (Death, Hospitalization, Other)
  Sender: FDA-Public Use
  Company Number: DE-AUROBINDO-AUR-APL-2018-024626

PATIENT

DRUGS (15)
  1. FOLINIC ACID [Suspect]
     Active Substance: LEUCOVORIN
     Indication: COLORECTAL CANCER
     Dosage: 700 MILLIGRAM
     Route: 042
     Dates: start: 20130902, end: 20140121
  2. AVASTIN [Suspect]
     Active Substance: BEVACIZUMAB
     Indication: COLORECTAL CANCER
     Dosage: 350 MILLIGRAM
     Route: 042
     Dates: start: 20130902, end: 20140121
  3. AVASTIN [Suspect]
     Active Substance: BEVACIZUMAB
     Dosage: 300 MILLIGRAM
     Route: 042
     Dates: start: 20140331, end: 20140331
  4. LYRICA [Concomitant]
     Active Substance: PREGABALIN
     Indication: POLYNEUROPATHY
     Dosage: 75 MILLIGRAM 1-0-1 (150 MG ONCE A DAY)
     Route: 048
     Dates: start: 20140110, end: 20140428
  5. TARGIN [Concomitant]
     Active Substance: NALOXONE HYDROCHLORIDE\OXYCODONE HYDROCHLORIDE
     Indication: TUMOUR PAIN
     Dosage: 5/2.5 MG, 1-0-1
     Route: 048
     Dates: start: 20140212, end: 20140428
  6. PALLADON [Concomitant]
     Active Substance: HYDROMORPHONE
     Indication: TUMOUR PAIN
     Dosage: 4 MILLIGRAM, TWO TIMES A DAY (1-0-1)
     Route: 048
     Dates: start: 20140110, end: 20140428
  7. 5-FLUOROURACIL [Suspect]
     Active Substance: FLUOROURACIL
     Indication: COLORECTAL CANCER
     Dosage: 700 MILLIGRAM, EVERY 15 DAYS
     Route: 040
     Dates: start: 20130902, end: 20140121
  8. FOLINIC ACID [Suspect]
     Active Substance: LEUCOVORIN
     Dosage: 650 MILLIGRAM
     Route: 042
     Dates: start: 20140213, end: 20140331
  9. OXALIPLATIN. [Suspect]
     Active Substance: OXALIPLATIN
     Indication: COLORECTAL CANCER
     Dosage: DAILY DOSE: 150 MG MILLGRAM(S) EVERY 15 DAYS
     Route: 042
     Dates: start: 20130902, end: 20140121
  10. 5-FLUOROURACIL [Suspect]
     Active Substance: FLUOROURACIL
     Dosage: 4000 MILLIGRAM, OVER 48 HOURS
     Route: 041
     Dates: start: 20130902, end: 20140122
  11. OXALIPLATIN. [Suspect]
     Active Substance: OXALIPLATIN
     Dosage: DAILY DOSE: 130 MG MILLGRAM(S) EVERY 15 DAYS
     Route: 042
     Dates: start: 20140213, end: 20140331
  12. 5-FLUOROURACIL [Suspect]
     Active Substance: FLUOROURACIL
     Dosage: 600 MILLIGRAM (15 DAY)
     Route: 040
     Dates: start: 20140213, end: 20140331
  13. 5-FLUOROURACIL [Suspect]
     Active Substance: FLUOROURACIL
     Dosage: 3500 MILLIGRAM, EVERY15 DAYS
     Route: 041
     Dates: start: 20140213, end: 20140401
  14. PANTOZOL [Concomitant]
     Active Substance: PANTOPRAZOLE SODIUM
     Indication: PROPHYLAXIS
     Dosage: 80 MILLIGRAM, ONCE A DAY (1-0-1)
     Route: 048
     Dates: start: 20130726, end: 20140428
  15. NOVALGIN [Concomitant]
     Indication: TUMOUR PAIN
     Dosage: 60 GTT DROPS, ONCE A DAY (1-1-1)
     Route: 048
     Dates: start: 20140110, end: 20140428

REACTIONS (9)
  - Nausea [Recovered/Resolved]
  - Dehydration [Recovered/Resolved]
  - Gastrooesophageal reflux disease [Recovered/Resolved]
  - Hemiparesis [Unknown]
  - Gastric ulcer [Recovered/Resolved]
  - Duodenal ulcer [Recovered/Resolved]
  - Cerebrovascular accident [Fatal]
  - Malignant neoplasm progression [Unknown]
  - Vomiting [Recovered/Resolved]

NARRATIVE: CASE EVENT DATE: 20140131
